FAERS Safety Report 21759524 (Version 4)
Quarter: 2023Q1

REPORT INFORMATION
  Report Type: Spontaneous
  Country: US (occurrence: US)
  Receive Date: 20221221
  Receipt Date: 20230125
  Transmission Date: 20230418
  Serious: Yes (Hospitalization, Other)
  Sender: FDA-Public Use
  Company Number: US-UROGEN PHARMA LTD.-2022-UGN-000147

PATIENT

DRUGS (6)
  1. JELMYTO [Suspect]
     Active Substance: MITOMYCIN
     Indication: Transitional cell cancer of the renal pelvis and ureter
     Dosage: 14 MILLILITER (INSTILLATION)
     Dates: start: 20221111, end: 20221111
  2. JELMYTO [Suspect]
     Active Substance: MITOMYCIN
     Dosage: 14 MILLILITER (INSTILLATION)
     Dates: start: 20221130, end: 20221130
  3. JELMYTO [Suspect]
     Active Substance: MITOMYCIN
     Dosage: 14 MILLILITER (INSTILLATION)
     Dates: start: 20221207, end: 20221207
  4. JELMYTO [Suspect]
     Active Substance: MITOMYCIN
     Dosage: 14 MILLILITER (INSTILLATION)
     Dates: start: 20221214, end: 20221214
  5. JELMYTO [Suspect]
     Active Substance: MITOMYCIN
     Dosage: UNK (INSTILLATION)
     Route: 065
  6. JELMYTO [Suspect]
     Active Substance: MITOMYCIN
     Dosage: UNK (INSTILLATION)
     Route: 065

REACTIONS (1)
  - Sepsis [Recovered/Resolved]

NARRATIVE: CASE EVENT DATE: 20221112
